FAERS Safety Report 20750054 (Version 1)
Quarter: 2022Q2

REPORT INFORMATION
  Report Type: Spontaneous
  Country: ID (occurrence: None)
  Receive Date: 20220426
  Receipt Date: 20220426
  Transmission Date: 20220721
  Serious: Yes (Death, Other)
  Sender: FDA-Public Use
  Company Number: 2022A160297

PATIENT
  Age: 62 Year
  Sex: Female

DRUGS (2)
  1. OSIMERTINIB [Suspect]
     Active Substance: OSIMERTINIB
     Indication: Lung adenocarcinoma stage IV
     Dosage: 80.0MG UNKNOWN
     Route: 048
     Dates: start: 20190120
  2. OSIMERTINIB [Suspect]
     Active Substance: OSIMERTINIB
     Indication: Lung adenocarcinoma stage IV
     Dosage: 160.0MG UNKNOWN
     Route: 048
     Dates: end: 20210606

REACTIONS (28)
  - Cardiotoxicity [Fatal]
  - Dizziness [Fatal]
  - Mucosal inflammation [Fatal]
  - Paronychia [Fatal]
  - Headache [Fatal]
  - Coordination abnormal [Fatal]
  - Vision blurred [Fatal]
  - Discomfort [Fatal]
  - Dysarthria [Fatal]
  - Asthenia [Fatal]
  - Palpitations [Fatal]
  - Dyspnoea [Fatal]
  - Peripheral swelling [Fatal]
  - Fatigue [Fatal]
  - Eye inflammation [Fatal]
  - Anxiety [Fatal]
  - Cough [Fatal]
  - Pain in extremity [Fatal]
  - Nausea [Fatal]
  - Decreased appetite [Fatal]
  - Stomatitis [Fatal]
  - Dry skin [Fatal]
  - Nail toxicity [Fatal]
  - Deep vein thrombosis [Fatal]
  - Hyponatraemia [Fatal]
  - Metastases to central nervous system [Fatal]
  - Cold sweat [Fatal]
  - Malignant neoplasm progression [Unknown]

NARRATIVE: CASE EVENT DATE: 20180716
